FAERS Safety Report 7411786-6 (Version None)
Quarter: 2011Q2

REPORT INFORMATION
  Report Type: 
  Country: None (occurrence: None)
  Receive Date: 20110413
  Receipt Date: 20110117
  Transmission Date: 20111010
  Serious: Yes (Death)
  Sender: FDA-Public Use
  Company Number: US-BRISTOL-MYERS SQUIBB COMPANY-15491905

PATIENT
  Sex: Male

DRUGS (1)
  1. ERBITUX [Suspect]
     Dosage: LIQUID
     Dates: start: 20110112, end: 20110112

REACTIONS (1)
  - MYOCARDIAL INFARCTION [None]
